FAERS Safety Report 5524659-0 (Version None)
Quarter: 2007Q4

REPORT INFORMATION
  Report Type: 
  Country: None (occurrence: None)
  Receive Date: 20071123
  Receipt Date: 20071116
  Transmission Date: 20080405
  Serious: Yes (Hospitalization)
  Sender: FDA-Public Use
  Company Number: US-SHR-US-2007-043544

PATIENT
  Sex: Female

DRUGS (1)
  1. BETASERON [Suspect]
     Dosage: 6 MIU, EVERY 2D
     Route: 058
     Dates: start: 20071017

REACTIONS (5)
  - CHEST PAIN [None]
  - DYSPNOEA [None]
  - EYE INFECTION [None]
  - SLEEP APNOEA SYNDROME [None]
  - ULCER [None]
